FAERS Safety Report 5341812-X (Version None)
Quarter: 2007Q2

REPORT INFORMATION
  Report Type: 
  Country: None (occurrence: None)
  Receive Date: 20070529
  Receipt Date: 20070529
  Transmission Date: 20071010
  Serious: Yes (Hospitalization)
  Sender: FDA-Public Use
  Company Number: None

PATIENT
  Sex: Male
  Weight: 11.7 kg

DRUGS (11)
  1. THIOTEPA [Suspect]
     Indication: MEDULLOBLASTOMA
     Dosage: 115MG-THIO- DAILY X 3 DAYS IV
     Route: 042
     Dates: start: 20070506, end: 20070508
  2. ETOPOSIDE [Suspect]
     Dosage: 95MG DAILY X 3 DAYS IV
     Route: 042
     Dates: start: 20070506, end: 20070508
  3. CARBOPLATIN [Suspect]
     Dosage: 190MG DAILY X 3 DAYS IV
     Route: 042
     Dates: start: 20070503, end: 20070505
  4. TYLENOL [Concomitant]
  5. MORHPINE [Concomitant]
  6. ACYCLOVIR [Concomitant]
  7. VANCOMYCIN HCL [Concomitant]
  8. NEUPOGEN [Concomitant]
  9. VORICONAZOLE [Concomitant]
  10. MEROPENEM [Concomitant]
  11. FLUCONAZOLE [Concomitant]

REACTIONS (1)
  - VENOUS OCCLUSION [None]
